FAERS Safety Report 5451574-3 (Version None)
Quarter: 2007Q3

REPORT INFORMATION
  Report Type: 
  Country: None (occurrence: None)
  Receive Date: 20070913
  Receipt Date: 20070904
  Transmission Date: 20080115
  Serious: Yes (Death, Hospitalization)
  Sender: FDA-Public Use
  Company Number: US-SHR-US-2007-031586

PATIENT
  Age: 46 Year
  Sex: Male
  Weight: 63.492 kg

DRUGS (2)
  1. BETASERON [Suspect]
     Indication: RELAPSING-REMITTING MULTIPLE SCLEROSIS
     Route: 058
     Dates: start: 20040405, end: 20040721
  2. BETASERON [Suspect]
     Dosage: 8 MIU, EVERY 2D
     Route: 058
     Dates: start: 20051119, end: 20070620

REACTIONS (11)
  - ASPIRATION [None]
  - BRAIN DAMAGE [None]
  - CARDIAC ARREST [None]
  - CONVULSION [None]
  - HEPATIC FAILURE [None]
  - MULTIPLE SCLEROSIS [None]
  - MYOCARDIAL INFARCTION [None]
  - PYREXIA [None]
  - RENAL FAILURE [None]
  - RESPIRATORY FAILURE [None]
  - STATUS EPILEPTICUS [None]
